FAERS Safety Report 13754193 (Version 2)
Quarter: 2017Q3

REPORT INFORMATION
  Report Type: Report from Study
  Country: None (occurrence: GB)
  Receive Date: 20170713
  Receipt Date: 20170803
  Transmission Date: 20171127
  Serious: Yes (Disabling)
  Sender: FDA-Public Use
  Company Number: GB-ABBVIE-17K-167-2038383-00

PATIENT
  Sex: Male

DRUGS (1)
  1. DUODOPA [Suspect]
     Active Substance: CARBIDOPA\LEVODOPA
     Indication: PRODUCT USED FOR UNKNOWN INDICATION
     Dosage: FLOW RATE 5.7MLS/HR
     Route: 050
     Dates: start: 20130501

REACTIONS (3)
  - Device leakage [Unknown]
  - Device occlusion [Unknown]
  - Bedridden [Unknown]
